FAERS Safety Report 6743130-1 (Version None)
Quarter: 2010Q2

REPORT INFORMATION
  Report Type: 
  Country: None (occurrence: None)
  Receive Date: 20100527
  Receipt Date: 20100519
  Transmission Date: 20101027
  Serious: Yes (Death, Hospitalization)
  Sender: FDA-Public Use
  Company Number: KR-JNJFOC-20100506370

PATIENT
  Sex: Female
  Weight: 52 kg

DRUGS (16)
  1. GOLIMUMAB [Suspect]
     Indication: RHEUMATOID ARTHRITIS
     Route: 058
  2. GOLIMUMAB [Suspect]
     Route: 058
  3. PLACEBO [Suspect]
     Indication: RHEUMATOID ARTHRITIS
     Route: 058
  4. METHOTREXATE [Suspect]
     Indication: RHEUMATOID ARTHRITIS
     Route: 048
  5. METHOTREXATE [Suspect]
     Route: 048
  6. ACETAMINOPHEN [Concomitant]
     Route: 048
  7. TRAMADOL HCL [Concomitant]
     Route: 048
  8. FOLATE [Concomitant]
     Route: 048
  9. FENOPROFEN CALCIUM [Concomitant]
     Route: 048
  10. PREDNISOLONE [Concomitant]
  11. CALCIUM CARBONATE [Concomitant]
     Route: 048
  12. MISOPROSTOL [Concomitant]
     Route: 048
  13. AMLODIPINE [Concomitant]
     Route: 048
  14. HYDROCHLOROTHIAZIDE [Concomitant]
     Route: 048
  15. METHOTREXATE [Concomitant]
     Route: 048
  16. FEROBA [Concomitant]
     Route: 048

REACTIONS (2)
  - CHOLECYSTITIS [None]
  - DISSEMINATED TUBERCULOSIS [None]
